FAERS Safety Report 13295838 (Version 1)
Quarter: 2017Q1

REPORT INFORMATION
  Report Type: Spontaneous
  Country: US (occurrence: US)
  Receive Date: 20170303
  Receipt Date: 20170303
  Transmission Date: 20170428
  Serious: Yes (Hospitalization)
  Sender: FDA-Public Use
  Company Number: US-BAUSCH-BL-2017-005360

PATIENT
  Sex: Female

DRUGS (1)
  1. XENAZINE [Suspect]
     Active Substance: TETRABENAZINE
     Indication: TARDIVE DYSKINESIA
     Route: 048
     Dates: start: 20150917

REACTIONS (4)
  - Product difficult to swallow [Unknown]
  - Off label use [Unknown]
  - Post procedural swelling [Unknown]
  - Hernia hiatus repair [Unknown]

NARRATIVE: CASE EVENT DATE: 2017
